FAERS Safety Report 7326381-7 (Version None)
Quarter: 2011Q1

REPORT INFORMATION
  Report Type: 
  Country: None (occurrence: None)
  Receive Date: 20110302
  Receipt Date: 20110222
  Transmission Date: 20110831
  Serious: Yes (Other)
  Sender: FDA-Public Use
  Company Number: ES-AMGEN-ESPSP2011010088

PATIENT
  Sex: Male

DRUGS (1)
  1. NEULASTA [Suspect]
     Indication: BLOOD STEM CELL HARVEST

REACTIONS (3)
  - FEELING ABNORMAL [None]
  - BONE PAIN [None]
  - ANAPHYLACTIC SHOCK [None]
